FAERS Safety Report 6936541-2 (Version None)
Quarter: 2010Q3

REPORT INFORMATION
  Report Type: 
  Country: None (occurrence: None)
  Receive Date: 20100823
  Receipt Date: 20100819
  Transmission Date: 20110219
  Serious: No
  Sender: FDA-Public Use
  Company Number: US-PFIZER INC-2010105033

PATIENT
  Sex: Male
  Weight: 78.912 kg

DRUGS (2)
  1. VIAGRA [Suspect]
     Indication: ERECTILE DYSFUNCTION
     Dosage: 50 MG, AS NEEDED
     Route: 048
     Dates: start: 20040101
  2. VIAGRA [Suspect]
     Dosage: 100 MG, AS NEEDED
     Route: 048
     Dates: start: 20040101

REACTIONS (1)
  - DRUG INEFFECTIVE [None]
